FAERS Safety Report 19108461 (Version 1)
Quarter: 2021Q2

REPORT INFORMATION
  Report Type: Spontaneous
  Country: US (occurrence: US)
  Receive Date: 20210408
  Receipt Date: 20210408
  Transmission Date: 20210717
  Serious: Yes (Other)
  Sender: FDA-Public Use
  Company Number: US-UNITED THERAPEUTICS-UNT-2021-005870

PATIENT
  Sex: Female

DRUGS (4)
  1. EFLORNITHINE [Concomitant]
     Active Substance: EFLORNITHINE
     Indication: NEUROBLASTOMA
     Dosage: UNK
     Route: 065
  2. UNITUXIN [Suspect]
     Active Substance: DINUTUXIMAB
     Indication: NEUROBLASTOMA
     Dosage: UNK, CYCLICAL
     Route: 041
  3. UNITUXIN [Suspect]
     Active Substance: DINUTUXIMAB
     Dosage: 2ND CYCLE (CYCLICAL)
     Route: 041
     Dates: start: 20210301
  4. UNITUXIN [Suspect]
     Active Substance: DINUTUXIMAB
     Dosage: 3RD CYCLE (CYCLICAL)
     Route: 041
     Dates: start: 20210401

REACTIONS (15)
  - Dyspnoea [Unknown]
  - Thirst [Unknown]
  - Anger [Unknown]
  - Seizure [Unknown]
  - Pain [Unknown]
  - Red blood cell count decreased [Unknown]
  - Tongue disorder [Unknown]
  - Respiration abnormal [Unknown]
  - Hepatic function abnormal [Unknown]
  - Platelet count decreased [Unknown]
  - Speech disorder [Unknown]
  - Swelling [Unknown]
  - Facial paralysis [Unknown]
  - Blood potassium decreased [Unknown]
  - Cough [Unknown]
